FAERS Safety Report 10153506 (Version 3)
Quarter: 2014Q2

REPORT INFORMATION
  Report Type: Report from Study
  Country: GB (occurrence: GB)
  Receive Date: 20140505
  Receipt Date: 20140602
  Transmission Date: 20141212
  Serious: Yes (Hospitalization)
  Sender: FDA-Public Use
  Company Number: GB-GLAXOSMITHKLINE-B0989588A

PATIENT
  Age: 82 Year
  Sex: Male
  Weight: 71.6 kg

DRUGS (16)
  1. OFATUMUMAB [Suspect]
     Indication: CHRONIC LYMPHOCYTIC LEUKAEMIA
     Dosage: 1000MG CYCLIC
     Route: 042
     Dates: start: 20140423, end: 20140423
  2. BENDAMUSTINE [Suspect]
     Indication: CHRONIC LYMPHOCYTIC LEUKAEMIA
     Dosage: 120MG CYCLIC
     Route: 042
     Dates: start: 20140423, end: 20140423
  3. PARACETAMOL [Concomitant]
     Indication: CHRONIC LYMPHOCYTIC LEUKAEMIA
     Route: 048
     Dates: start: 20140423, end: 20140423
  4. CHLORPHENIRAMINE [Concomitant]
     Indication: CHRONIC LYMPHOCYTIC LEUKAEMIA
     Route: 048
     Dates: start: 20140423, end: 20140423
  5. PREDNISOLONE [Concomitant]
     Indication: CHRONIC LYMPHOCYTIC LEUKAEMIA
     Dosage: 10MG PER DAY
     Route: 048
     Dates: start: 20131021
  6. ALLOPURINOL [Concomitant]
     Indication: CHRONIC LYMPHOCYTIC LEUKAEMIA
     Route: 048
     Dates: start: 20140423
  7. METOCLOPRAMIDE [Concomitant]
     Indication: CHRONIC LYMPHOCYTIC LEUKAEMIA
     Route: 048
     Dates: start: 20140423
  8. ACICLOVIR [Concomitant]
     Indication: CHRONIC LYMPHOCYTIC LEUKAEMIA
  9. GRANULOCYTE COLONY-STIMULATING FACTOR NOS [Concomitant]
  10. HYDROCORTISONE [Concomitant]
     Indication: CHRONIC LYMPHOCYTIC LEUKAEMIA
     Route: 042
     Dates: start: 20140423, end: 20140423
  11. ATENOLOL [Concomitant]
     Indication: HYPERTENSION
     Dosage: 50MG PER DAY
     Route: 048
     Dates: start: 20010526
  12. FOLIC ACID [Concomitant]
     Indication: ANAEMIA
     Dosage: 5MG PER DAY
     Route: 048
     Dates: start: 20121130
  13. VIT B CO STRONG [Concomitant]
     Indication: NUTRITIONAL SUPPLEMENTATION
     Route: 048
     Dates: start: 20121130
  14. ALENDRONIC ACID [Concomitant]
     Indication: OSTEOPENIA
     Dosage: 70MG WEEKLY
     Route: 048
     Dates: start: 20121130
  15. ASPIRIN [Concomitant]
     Indication: COAGULOPATHY
     Dosage: 75MG PER DAY
     Route: 048
     Dates: start: 20071122
  16. MATRIFEN [Concomitant]
     Indication: PAIN
     Dosage: 25MCG EVERY 3 DAYS
     Route: 061
     Dates: start: 20130702

REACTIONS (1)
  - Dermatitis exfoliative [Not Recovered/Not Resolved]
